FAERS Safety Report 4408087-7 (Version None)
Quarter: 2004Q3

REPORT INFORMATION
  Report Type: 
  Country: None (occurrence: None)
  Receive Date: 20040722
  Receipt Date: 20040712
  Transmission Date: 20050211
  Serious: No
  Sender: FDA-Public Use
  Company Number: 2004-118536-NL

PATIENT
  Age: 48 Year
  Sex: Female

DRUGS (13)
  1. MIRTAZAPINE (BATCH #: A63513/P4017) [Suspect]
     Indication: DEPRESSION
     Dosage: 60 MG ORAL
     Route: 048
     Dates: start: 20040709, end: 20040710
  2. MIRTAZAPINE (BATCH #: A63513/P4017) [Suspect]
     Indication: WEIGHT CONTROL
     Dosage: 60 MG ORAL
     Route: 048
     Dates: start: 20040709, end: 20040710
  3. METHYSERGIDE [Concomitant]
  4. LEVOTHYROXINE SODIUM [Concomitant]
  5. LIOTHYRONINE SODIUM [Concomitant]
  6. IMMUNE GLOBULIN INTRAVENOUS (HUMAN) [Concomitant]
  7. FAMCICLOVIR [Concomitant]
  8. HYDROXYCHLOROQUINE SULFATE [Concomitant]
  9. MIRTAZAPINE [Concomitant]
  10. PILOCARPINE HYDROCHLORIDE [Concomitant]
  11. RABEPRAZOLE SODIUM [Concomitant]
  12. VITAMIN B-12 [Concomitant]
  13. BUPROPION HYDROCHLORIDE [Concomitant]

REACTIONS (9)
  - COLD SWEAT [None]
  - DYSPHAGIA [None]
  - DYSPNOEA [None]
  - HEART RATE INCREASED [None]
  - NAUSEA [None]
  - OROPHARYNGEAL SWELLING [None]
  - SWOLLEN TONGUE [None]
  - TREMOR [None]
  - VOMITING [None]
